FAERS Safety Report 7235339-8 (Version None)
Quarter: 2011Q1

REPORT INFORMATION
  Report Type: 
  Country: None (occurrence: None)
  Receive Date: 20110120
  Receipt Date: 20110111
  Transmission Date: 20110831
  Serious: Yes (Other)
  Sender: FDA-Public Use
  Company Number: IE-BAXTER-2011BH000731

PATIENT
  Age: 57 Year
  Sex: Female

DRUGS (2)
  1. EXTRANEAL [Suspect]
     Indication: PERITONEAL DIALYSIS
     Route: 033
     Dates: start: 20091122
  2. EXTRANEAL [Suspect]
     Indication: INDWELLING CATHETER MANAGEMENT
     Route: 033
     Dates: start: 20091122

REACTIONS (3)
  - PERITONEAL CLOUDY EFFLUENT [None]
  - BLOODY PERITONEAL EFFLUENT [None]
  - PERITONEAL EFFLUENT ABNORMAL [None]
